FAERS Safety Report 8140396-0 (Version None)
Quarter: 2012Q1

REPORT INFORMATION
  Report Type: 
  Country: None (occurrence: None)
  Receive Date: 20120216
  Receipt Date: 20120213
  Transmission Date: 20120608
  Serious: No
  Sender: FDA-Public Use
  Company Number: US-PFIZER INC-2012038864

PATIENT
  Sex: Male

DRUGS (2)
  1. DEPO-TESTOSTERONE [Suspect]
     Indication: OFF LABEL USE
     Dosage: UNK, 2X/WEEK
  2. DEPO-TESTOSTERONE [Suspect]
     Indication: PROSTATE CANCER

REACTIONS (2)
  - POOR QUALITY DRUG ADMINISTERED [None]
  - BLOOD TESTOSTERONE ABNORMAL [None]
